FAERS Safety Report 4312903-7 (Version None)
Quarter: 2004Q1

REPORT INFORMATION
  Report Type: 
  Country: None (occurrence: None)
  Receive Date: 20040302
  Receipt Date: 20040116
  Transmission Date: 20041129
  Serious: No
  Sender: FDA-Public Use
  Company Number: WAES 0401USA01295

PATIENT

DRUGS (2)
  1. CANCIDAS [Suspect]
     Dosage: 70 MG/1X/IV; 50 MG /DAILY/ IV
     Route: 042
     Dates: start: 20040109, end: 20040109
  2. CANCIDAS [Suspect]
     Dosage: 70 MG/1X/IV; 50 MG /DAILY/ IV
     Route: 042
     Dates: start: 20040110, end: 20040115

REACTIONS (1)
  - HYPERCALCAEMIA [None]
